FAERS Safety Report 16541222 (Version 2)
Quarter: 2019Q3

REPORT INFORMATION
  Report Type: Report from Study
  Country: CA (occurrence: CA)
  Receive Date: 20190708
  Receipt Date: 20190731
  Transmission Date: 20191004
  Serious: No
  Sender: FDA-Public Use
  Company Number: CA-JNJFOC-20190631673

PATIENT
  Age: 40 Year
  Sex: Female
  Weight: 85 kg

DRUGS (2)
  1. STELARA [Suspect]
     Active Substance: USTEKINUMAB
     Indication: CROHN^S DISEASE
     Dosage: STRENGTH = 130 MG
     Route: 042
     Dates: start: 20190430
  2. STELARA [Suspect]
     Active Substance: USTEKINUMAB
     Route: 058
     Dates: start: 20190430

REACTIONS (4)
  - Frequent bowel movements [Unknown]
  - Restless legs syndrome [Recovering/Resolving]
  - Muscle spasms [Recovering/Resolving]
  - Rectal spasm [Not Recovered/Not Resolved]

NARRATIVE: CASE EVENT DATE: 2019
